FAERS Safety Report 19273402 (Version 1)
Quarter: 2021Q2

REPORT INFORMATION
  Report Type: Other
  Country: GB (occurrence: GB)
  Receive Date: 20210519
  Receipt Date: 20210519
  Transmission Date: 20210717
  Serious: Yes (Other)
  Sender: FDA-Public Use
  Company Number: GB-CELLTRION INC.-2021GB006634

PATIENT

DRUGS (1)
  1. INFLIXIMAB (UNKNOWN) [Suspect]
     Active Substance: INFLIXIMAB
     Indication: CROHN^S DISEASE
     Dosage: 730 MG
     Route: 042
     Dates: start: 20200513, end: 20210506

REACTIONS (6)
  - Ocular hyperaemia [Unknown]
  - Hypertension [Unknown]
  - Erythema [Unknown]
  - Nausea [Recovered/Resolved]
  - Malaise [Unknown]
  - Swelling face [Unknown]

NARRATIVE: CASE EVENT DATE: 20210506
